FAERS Safety Report 11710960 (Version 1)
Quarter: 2015Q4

REPORT INFORMATION
  Report Type: Spontaneous
  Country: US (occurrence: US)
  Receive Date: 20151104
  Receipt Date: 20151104
  Transmission Date: 20160304
  Serious: No
  Sender: FDA-Public Use
  Company Number: US-ELI_LILLY_AND_COMPANY-US201102002828

PATIENT
  Age: 51 Year
  Sex: Female

DRUGS (1)
  1. FORTEO [Suspect]
     Active Substance: TERIPARATIDE
     Indication: OSTEOPOROSIS
     Dosage: 20 UG, DAILY (1/D)
     Dates: start: 20101015, end: 20110131

REACTIONS (9)
  - Hypoaesthesia [Unknown]
  - Adverse drug reaction [Unknown]
  - Fracture [Unknown]
  - Pain [Recovered/Resolved]
  - Musculoskeletal disorder [Unknown]
  - Spinal compression fracture [Unknown]
  - Paraesthesia [Unknown]
  - Drug dose omission [Unknown]
  - Bone disorder [Unknown]
